FAERS Safety Report 22316503 (Version 2)
Quarter: 2023Q2

REPORT INFORMATION
  Report Type: Report from Study
  Country: US (occurrence: US)
  Receive Date: 20230513
  Receipt Date: 20230518
  Transmission Date: 20230721
  Serious: No
  Sender: FDA-Public Use
  Company Number: US-002147023-NVSC2023US107093

PATIENT
  Sex: Female

DRUGS (1)
  1. TABRECTA [Suspect]
     Active Substance: CAPMATINIB
     Indication: Product used for unknown indication
     Dosage: 200 MG
     Route: 048
     Dates: start: 20230421

REACTIONS (6)
  - Skin discolouration [Unknown]
  - Dry skin [Unknown]
  - Discomfort [Unknown]
  - Pruritus [Unknown]
  - Asthenia [Unknown]
  - Rash [Recovering/Resolving]
